FAERS Safety Report 9223840 (Version 1)
Quarter: 2013Q2

REPORT INFORMATION
  Report Type: Spontaneous
  Country: DE (occurrence: DE)
  Receive Date: 20130411
  Receipt Date: 20130411
  Transmission Date: 20140414
  Serious: Yes (Other)
  Sender: FDA-Public Use
  Company Number: DE-AMGEN-DEUSP2013024583

PATIENT
  Age: 74 Year
  Sex: Female

DRUGS (2)
  1. ENBREL [Suspect]
     Indication: RHEUMATOID ARTHRITIS
     Dosage: 50 MG, WEEKLY
     Dates: start: 20120720
  2. PREDNISOLON                        /00016201/ [Concomitant]
     Dosage: 5 MG, UNK

REACTIONS (2)
  - Abasia [Recovered/Resolved]
  - Vitamin D deficiency [Recovered/Resolved]
